FAERS Safety Report 7985471-6 (Version None)
Quarter: 2011Q4

REPORT INFORMATION
  Report Type: 
  Country: None (occurrence: None)
  Receive Date: 20111216
  Receipt Date: 20111214
  Transmission Date: 20120403
  Serious: Yes (Other)
  Sender: FDA-Public Use
  Company Number: IT-ROCHE-1021759

PATIENT
  Sex: Male

DRUGS (5)
  1. VESANOID [Suspect]
     Indication: ACUTE MYELOID LEUKAEMIA
     Route: 048
     Dates: start: 20100206
  2. DECADRON [Concomitant]
     Route: 065
  3. ROCEPHIN [Concomitant]
     Route: 065
  4. LEVOTHYROXINE SODIUM [Concomitant]
     Route: 065
  5. VITAMIN D [Concomitant]
     Route: 065

REACTIONS (1)
  - HYPOCALCAEMIA [None]
